FAERS Safety Report 4884437-2 (Version None)
Quarter: 2006Q1

REPORT INFORMATION
  Report Type: 
  Country: None (occurrence: None)
  Receive Date: 20060117
  Receipt Date: 20060117
  Transmission Date: 20060701
  Serious: Yes (Hospitalization)
  Sender: FDA-Public Use
  Company Number: None

PATIENT
  Age: 73 Year
  Sex: Female

DRUGS (9)
  1. CLINDAMYCIN [Suspect]
     Indication: INFECTION
     Dosage: 300 MG QID PO X 10 DAYS
     Route: 048
     Dates: start: 20051116
  2. PATANOL [Concomitant]
  3. KENALOG [Concomitant]
  4. MAXZIDE [Concomitant]
  5. DILTIAZEM HCL [Concomitant]
  6. LISINOPRIL [Concomitant]
  7. SERAVENT [Concomitant]
  8. PROVENTIL [Concomitant]
  9. SINGULAIR [Concomitant]

REACTIONS (4)
  - DEHYDRATION [None]
  - DIARRHOEA [None]
  - ELECTROLYTE IMBALANCE [None]
  - VOMITING [None]
